FAERS Safety Report 7142220-1 (Version None)
Quarter: 2010Q4

REPORT INFORMATION
  Report Type: 
  Country: None (occurrence: None)
  Receive Date: 20101207
  Receipt Date: 20101124
  Transmission Date: 20110411
  Serious: Yes (Other)
  Sender: FDA-Public Use
  Company Number: PHEH2007US12136

PATIENT
  Sex: Male

DRUGS (22)
  1. AREDIA [Suspect]
     Dosage: 60 MG EVERY 6 MONTHS
     Route: 042
     Dates: start: 19990101
  2. AREDIA [Suspect]
     Dosage: 90 MG, QMO
     Route: 042
     Dates: start: 20050101, end: 20060801
  3. AREDIA [Suspect]
     Dosage: 60 MG Q3MON
     Dates: start: 19991201
  4. ZOMETA [Suspect]
     Dosage: 4 MG, QMO
     Route: 042
     Dates: end: 20050101
  5. AMOXICILLIN [Concomitant]
  6. BIAXIN [Concomitant]
  7. TYLENOL-500 [Concomitant]
  8. MORPHINE [Concomitant]
  9. MS CONTIN [Concomitant]
  10. DILAUDID [Concomitant]
  11. CALCITONIN [Concomitant]
  12. FOSAMAX [Concomitant]
  13. OXYCONTIN [Concomitant]
  14. PERCOCET [Concomitant]
  15. VALIUM [Concomitant]
  16. LOVENOX [Concomitant]
  17. CEFAZOLIN [Concomitant]
  18. DEMEROL [Concomitant]
  19. LEVAQUIN [Concomitant]
  20. OXYCODONE HCL [Concomitant]
  21. PRILOSEC [Concomitant]
  22. NITROGLYCERIN ^A.L.^ [Concomitant]

REACTIONS (66)
  - AORTIC ARTERIOSCLEROSIS [None]
  - AORTIC DILATATION [None]
  - ARTHRALGIA [None]
  - BACK DISORDER [None]
  - BACK PAIN [None]
  - BONE DENSITY DECREASED [None]
  - BONE DISORDER [None]
  - CARDIOMEGALY [None]
  - CERVICOBRACHIAL SYNDROME [None]
  - CHRONIC OBSTRUCTIVE PULMONARY DISEASE [None]
  - CHRONIC SINUSITIS [None]
  - DEFORMITY [None]
  - EAR PAIN [None]
  - EMPHYSEMA [None]
  - ERECTILE DYSFUNCTION [None]
  - FALL [None]
  - FATIGUE [None]
  - FEMUR FRACTURE [None]
  - FOOT FRACTURE [None]
  - GAIT DISTURBANCE [None]
  - GINGIVAL DISORDER [None]
  - HEADACHE [None]
  - INFECTION [None]
  - INFLUENZA LIKE ILLNESS [None]
  - INSOMNIA [None]
  - INTERNAL FIXATION OF FRACTURE [None]
  - INTERVERTEBRAL DISC DEGENERATION [None]
  - INTRAMEDULLARY ROD INSERTION [None]
  - JAW FRACTURE [None]
  - KYPHOSIS [None]
  - LARYNGEAL REPAIR [None]
  - LUNG HYPERINFLATION [None]
  - MASS [None]
  - NASAL SEPTAL OPERATION [None]
  - NAUSEA [None]
  - NEOPLASM SKIN [None]
  - OEDEMA [None]
  - OEDEMA PERIPHERAL [None]
  - ORAL INFECTION [None]
  - ORAL PAIN [None]
  - OSTEOARTHRITIS [None]
  - OSTEOGENESIS IMPERFECTA [None]
  - OSTEOMYELITIS [None]
  - OSTEONECROSIS OF JAW [None]
  - OSTEOPENIA [None]
  - OSTEOPOROSIS [None]
  - PAIN [None]
  - PAIN IN EXTREMITY [None]
  - PAIN IN JAW [None]
  - PATHOLOGICAL FRACTURE [None]
  - RIB FRACTURE [None]
  - SINUS HEADACHE [None]
  - SINUS OPERATION [None]
  - SINUSITIS [None]
  - SPINAL COMPRESSION FRACTURE [None]
  - SPINAL CORD COMPRESSION [None]
  - SPINAL FRACTURE [None]
  - SURGERY [None]
  - SWELLING [None]
  - SWELLING FACE [None]
  - TOOTH EXTRACTION [None]
  - ULNA FRACTURE [None]
  - UPPER AIRWAY OBSTRUCTION [None]
  - VOCAL CORD PARALYSIS [None]
  - VOMITING [None]
  - WEIGHT INCREASED [None]
